FAERS Safety Report 19557205 (Version 2)
Quarter: 2021Q3

REPORT INFORMATION
  Report Type: Report from Study
  Country: DE (occurrence: BR)
  Receive Date: 20210714
  Receipt Date: 20210901
  Transmission Date: 20211014
  Serious: Yes (Hospitalization, Other)
  Sender: FDA-Public Use
  Company Number: BR-ELI_LILLY_AND_COMPANY-BR202106011353

PATIENT
  Age: 60 Year
  Sex: Male

DRUGS (5)
  1. CODEINE [Concomitant]
     Active Substance: CODEINE
     Indication: TUMOUR PAIN
  2. MORPHINE [Concomitant]
     Active Substance: MORPHINE
     Dosage: 1 DOSAGE FORM, BID
     Route: 048
     Dates: start: 2021
  3. OMEPRAZOLE. [Concomitant]
     Active Substance: OMEPRAZOLE
     Indication: PRODUCT USED FOR UNKNOWN INDICATION
  4. MORPHINE [Concomitant]
     Active Substance: MORPHINE
     Indication: TUMOUR PAIN
     Dosage: 0.5 DOSAGE FORM, EVERY 6 HRS
     Route: 048
     Dates: start: 2021
  5. CETUXIMAB. [Suspect]
     Active Substance: CETUXIMAB
     Indication: COLON CANCER METASTATIC
     Dosage: UNK, 2/M
     Route: 042
     Dates: start: 20210301

REACTIONS (7)
  - Ocular hyperaemia [Unknown]
  - Decreased appetite [Recovering/Resolving]
  - Off label use [Unknown]
  - Skin infection [Recovering/Resolving]
  - Gait disturbance [Unknown]
  - Ageusia [Recovering/Resolving]
  - Skin reaction [Recovering/Resolving]

NARRATIVE: CASE EVENT DATE: 2021
